FAERS Safety Report 8425340-0 (Version None)
Quarter: 2012Q2

REPORT INFORMATION
  Report Type: 
  Country: None (occurrence: None)
  Receive Date: 20120611
  Receipt Date: 20120604
  Transmission Date: 20120825
  Serious: No
  Sender: FDA-Public Use
  Company Number: US-BAYER-2012-053042

PATIENT

DRUGS (1)
  1. ASPIRIN [Suspect]

REACTIONS (1)
  - PAIN [None]
